FAERS Safety Report 21632108 (Version 2)
Quarter: 2022Q4

REPORT INFORMATION
  Report Type: Spontaneous
  Country: US (occurrence: US)
  Receive Date: 20221123
  Receipt Date: 20221124
  Transmission Date: 20230113
  Serious: No
  Sender: FDA-Public Use
  Company Number: US-BRISTOL-MYERS SQUIBB COMPANY-2022-141873

PATIENT
  Age: 57 Year
  Sex: Male
  Weight: 97.8 kg

DRUGS (1)
  1. REVLIMID [Suspect]
     Active Substance: LENALIDOMIDE
     Indication: Plasma cell myeloma
     Dosage: FREQ: TAKES 25MG DAILY FOR 21 DAYS ON 7 DAYS OFF
     Route: 048
     Dates: start: 20221025, end: 20221107

REACTIONS (1)
  - Rash [Unknown]
